FAERS Safety Report 7686081-0 (Version None)
Quarter: 2011Q3

REPORT INFORMATION
  Report Type: 
  Country: None (occurrence: None)
  Receive Date: 20110811
  Receipt Date: 20110729
  Transmission Date: 20111222
  Serious: Yes (Hospitalization)
  Sender: FDA-Public Use
  Company Number: AUR-APL-2011-04525

PATIENT
  Age: 46 Year
  Sex: Female

DRUGS (8)
  1. DALTEPARIN SODIUM [Suspect]
     Indication: LUNG NEOPLASM MALIGNANT
     Dosage: 5000 IU, 1 D, SUBCUTANEOUS
     Route: 058
     Dates: start: 20110723
  2. DEXAMETHASONE [Concomitant]
  3. CISPLATIN [Suspect]
     Indication: PRODUCT USED FOR UNKNOWN INDICATION
     Dosage: 127 MG, 1 D, INTRAVENOUS
     Route: 042
     Dates: start: 20110723, end: 20110723
  4. PEMETREXED [Suspect]
     Indication: PRODUCT USED FOR UNKNOWN INDICATION
     Dosage: 850 MG, 1 D, INTRAVENOUS
     Route: 042
     Dates: start: 20110723, end: 20110723
  5. FOLIC ACID [Concomitant]
  6. ONDANSETRON [Suspect]
     Indication: PRODUCT USED FOR UNKNOWN INDICATION
     Dosage: 8 MG (8 MG, 1 IN D),ORAL; 8 MG, INTRAVENOUS
     Route: 048
     Dates: start: 20110723, end: 20110726
  7. ONDANSETRON [Suspect]
     Indication: PRODUCT USED FOR UNKNOWN INDICATION
     Dosage: 8 MG (8 MG, 1 IN D),ORAL; 8 MG, INTRAVENOUS
     Route: 048
     Dates: start: 20110723, end: 20110726
  8. METOCLOPRAMIDE [Concomitant]

REACTIONS (6)
  - NAUSEA [None]
  - HEADACHE [None]
  - PRESYNCOPE [None]
  - VOMITING [None]
  - HYPOTENSION [None]
  - DEHYDRATION [None]
